FAERS Safety Report 6773284-2 (Version None)
Quarter: 2010Q2

REPORT INFORMATION
  Report Type: 
  Country: None (occurrence: None)
  Receive Date: 20100616
  Receipt Date: 20100611
  Transmission Date: 20101027
  Serious: Yes (Life-Threatening, Hospitalization)
  Sender: FDA-Public Use
  Company Number: US-GILEAD-2010-0027307

PATIENT
  Sex: Female

DRUGS (12)
  1. LETAIRIS [Suspect]
     Indication: PULMONARY ARTERIAL HYPERTENSION
     Route: 048
     Dates: start: 20100204, end: 20100215
  2. REVATIO [Concomitant]
  3. TORSEMIDE [Concomitant]
  4. LISINOPRIL [Concomitant]
  5. VERAPAMIL [Concomitant]
  6. ADVAIR DISKUS 100/50 [Concomitant]
  7. PLAVIX [Concomitant]
  8. LEVOXYL [Concomitant]
  9. CITALOPRAM HYDROBROMIDE [Concomitant]
  10. MIRAPEX [Concomitant]
  11. METFORMIN [Concomitant]
  12. NEXIUM [Concomitant]

REACTIONS (5)
  - ABDOMINAL DISTENSION [None]
  - FLUID RETENTION [None]
  - HAEMOGLOBIN DECREASED [None]
  - HEADACHE [None]
  - PAIN [None]
